FAERS Safety Report 21816509 (Version 1)
Quarter: 2023Q1

REPORT INFORMATION
  Report Type: Spontaneous
  Country: US (occurrence: None)
  Receive Date: 20230103
  Receipt Date: 20230103
  Transmission Date: 20230418
  Serious: Yes (Hospitalization, Disabling, Other)
  Sender: FDA-Public Use
  Company Number: None

PATIENT
  Age: 58 Year
  Sex: Female
  Weight: 99 kg

DRUGS (2)
  1. UP AND UP COUGH PLUS CHEST CONGESTION [Suspect]
     Active Substance: DEXTROMETHORPHAN HYDROBROMIDE\GUAIFENESIN
     Indication: Asthma
     Route: 048
  2. UP AND UP COUGH PLUS CHEST CONGESTION [Suspect]
     Active Substance: DEXTROMETHORPHAN HYDROBROMIDE\GUAIFENESIN
     Indication: Cough

REACTIONS (26)
  - Chest pain [None]
  - Painful respiration [None]
  - Pyrexia [None]
  - Asthenia [None]
  - Fatigue [None]
  - Arthralgia [None]
  - Pain in extremity [None]
  - Arthralgia [None]
  - Gait inability [None]
  - Syncope [None]
  - Joint swelling [None]
  - Rash [None]
  - Nodule [None]
  - Swelling [None]
  - Blister [None]
  - Peripheral swelling [None]
  - Balance disorder [None]
  - Tremor [None]
  - Apraxia [None]
  - Arthralgia [None]
  - Peripheral swelling [None]
  - Nervous system disorder [None]
  - Pain in jaw [None]
  - Facial pain [None]
  - Product contamination [None]
  - Peripheral swelling [None]
